FAERS Safety Report 5304531-1 (Version None)
Quarter: 2007Q2

REPORT INFORMATION
  Report Type: 
  Country: None (occurrence: None)
  Receive Date: 20070417
  Receipt Date: 20070417
  Transmission Date: 20071010
  Serious: Yes (Life-Threatening)
  Sender: FDA-Public Use
  Company Number: None

PATIENT
  Age: 79 Year
  Sex: Female
  Weight: 54.4316 kg

DRUGS (2)
  1. INVEGA [Suspect]
     Indication: DELIRIUM
     Dosage: 3 MG QD PO
     Route: 048
     Dates: start: 20070301
  2. INVEGA [Suspect]
     Indication: HALLUCINATION
     Dosage: 3 MG QD PO
     Route: 048
     Dates: start: 20070301

REACTIONS (2)
  - DEEP VEIN THROMBOSIS [None]
  - OSTEOPOROSIS [None]
